FAERS Safety Report 20679813 (Version 5)
Quarter: 2022Q2

REPORT INFORMATION
  Report Type: Report from Study
  Country: CO (occurrence: CO)
  Receive Date: 20220406
  Receipt Date: 20220602
  Transmission Date: 20220721
  Serious: Yes (Hospitalization)
  Sender: FDA-Public Use
  Company Number: CO-NOVARTISPH-NVSC2022CO054933

PATIENT
  Age: 13 Year
  Sex: Female

DRUGS (1)
  1. ELTROMBOPAG OLAMINE [Suspect]
     Active Substance: ELTROMBOPAG OLAMINE
     Indication: Immune thrombocytopenia
     Dosage: 50 MG, QD
     Route: 048
     Dates: start: 20211217

REACTIONS (6)
  - Feeling abnormal [Unknown]
  - Haematemesis [Unknown]
  - Platelet count decreased [Unknown]
  - Malaise [Unknown]
  - Confusional state [Unknown]
  - Illness [Unknown]

NARRATIVE: CASE EVENT DATE: 20211121
